FAERS Safety Report 16451195 (Version 6)
Quarter: 2019Q4

REPORT INFORMATION
  Report Type: Report from Study
  Country: BE (occurrence: BE)
  Receive Date: 20190619
  Receipt Date: 20191219
  Transmission Date: 20200122
  Serious: Yes (Other)
  Sender: FDA-Public Use
  Company Number: BE-PFIZER INC-2019121652

PATIENT
  Age: 79 Year
  Sex: Male
  Weight: 75 kg

DRUGS (18)
  1. IRINOTECAN HCL [Suspect]
     Active Substance: IRINOTECAN HYDROCHLORIDE
     Dosage: 1 (UNITS NOT PROVIDED) EVERY TWO WEEKS
     Route: 042
     Dates: start: 20181203
  2. FLUOROURACIL. [Suspect]
     Active Substance: FLUOROURACIL
     Dosage: 1 (UNITS NOT PROVIDED), EVERY 2 WEEKS
     Route: 042
     Dates: start: 20181203
  3. XARELTO [Concomitant]
     Active Substance: RIVAROXABAN
     Dosage: 20 MG, 1X/DAY
     Route: 065
     Dates: start: 20161227
  4. BEVACIZUMAB. [Suspect]
     Active Substance: BEVACIZUMAB
     Dosage: 385 MG, UNK
     Route: 042
     Dates: start: 20190204
  5. BROMAZEPAM [Concomitant]
     Active Substance: BROMAZEPAM
     Dosage: UNK
  6. AMLOR [Concomitant]
     Active Substance: AMLODIPINE BESYLATE
     Dosage: 5 MG, 1X/DAY
     Route: 065
  7. TRADONAL [Concomitant]
     Active Substance: TRAMADOL HYDROCHLORIDE
     Dosage: UNK
  8. FLUOROURACIL. [Suspect]
     Active Substance: FLUOROURACIL
     Indication: COLORECTAL CANCER METASTATIC
     Dosage: 1 (UNITS NOT PROVIDED), EVERY 2 WEEKS, ON 04/FEB/2019, RECEIVED MOST RECENT DOSE OF FLUO 3872.8
     Route: 042
     Dates: start: 20181022
  9. ZYLORIC [Concomitant]
     Active Substance: ALLOPURINOL
     Dosage: 300 MG, 1X/DAY
     Route: 065
  10. IRINOTECAN HCL [Suspect]
     Active Substance: IRINOTECAN HYDROCHLORIDE
     Dosage: 259 OT, UNK
     Route: 042
     Dates: start: 20190204
  11. OXALIPLATIN. [Suspect]
     Active Substance: OXALIPLATIN
     Indication: COLORECTAL CANCER METASTATIC
     Dosage: UNK
     Route: 042
  12. FLUOROURACIL. [Suspect]
     Active Substance: FLUOROURACIL
     Dosage: 3872.8 OT, UNK
     Route: 042
     Dates: start: 20190204
  13. BEVACIZUMAB. [Suspect]
     Active Substance: BEVACIZUMAB
     Indication: COLORECTAL CANCER METASTATIC
     Dosage: 375 MG EVERY TWO WEEKS (MOST RECENT DOSE AND DATE OF BEVACIZUMAB UPDATED TO 385 MG AND 04FEB2019)
     Route: 042
     Dates: start: 20181022
  14. AMLOR [Concomitant]
     Active Substance: AMLODIPINE BESYLATE
     Dosage: 5 MG, 1X/DAY
     Route: 065
  15. BEVACIZUMAB. [Suspect]
     Active Substance: BEVACIZUMAB
     Dosage: 1 (UNITS NOT PROVIDED) , EVERY TWO WEEKS
     Route: 042
     Dates: start: 20181203
  16. PARACETAMOL [Concomitant]
     Active Substance: ACETAMINOPHEN
     Dosage: UNK
  17. IRINOTECAN HCL [Suspect]
     Active Substance: IRINOTECAN HYDROCHLORIDE
     Indication: COLORECTAL CANCER METASTATIC
     Dosage: 1 (UNITS NOT PROVIDED) EVERY TWO WEEKS, ON 04/FEB/2019, RECEIVED MOST RECENT DOSE OF IRINOTECAN 259
     Route: 042
     Dates: start: 20181022
  18. FOLINIC ACID [Suspect]
     Active Substance: LEUCOVORIN
     Indication: COLORECTAL CANCER METASTATIC
     Dosage: 1 (UNITS NOT PROVIDED) , EVERY TWO WEEKS
     Route: 042
     Dates: start: 20181022

REACTIONS (16)
  - Syncope [Recovered/Resolved]
  - Proteinuria [Not Recovered/Not Resolved]
  - Epistaxis [Recovered/Resolved]
  - Neuropathy peripheral [Not Recovered/Not Resolved]
  - Dysphonia [Recovered/Resolved]
  - Respiratory tract infection [Recovered/Resolved]
  - Anal haemorrhage [Recovered/Resolved]
  - Diarrhoea [Recovered/Resolved]
  - Nasopharyngitis [Not Recovered/Not Resolved]
  - Constipation [Not Recovered/Not Resolved]
  - Malaise [Not Recovered/Not Resolved]
  - Epistaxis [Recovered/Resolved]
  - Fatigue [Not Recovered/Not Resolved]
  - Stomatitis [Recovered/Resolved]
  - Epistaxis [Not Recovered/Not Resolved]
  - Dysphonia [Not Recovered/Not Resolved]

NARRATIVE: CASE EVENT DATE: 20181109
